FAERS Safety Report 4919292-5 (Version None)
Quarter: 2006Q1

REPORT INFORMATION
  Report Type: 
  Country: None (occurrence: None)
  Receive Date: 20060113
  Receipt Date: 20051206
  Transmission Date: 20060701
  Serious: No
  Sender: FDA-Public Use
  Company Number: 2005SP004301

PATIENT
  Age: 66 Year
  Sex: Female
  Weight: 59.8748 kg

DRUGS (8)
  1. LUNESTA [Suspect]
     Indication: INSOMNIA
     Dosage: 2 MG; HS; ORAL
     Route: 048
     Dates: start: 20051201, end: 20051201
  2. MESTINON [Concomitant]
  3. ETANERCEPT [Concomitant]
  4. METHOTREXATE [Concomitant]
  5. FOLIC ACID [Concomitant]
  6. CHOLINE MAGNESIUM [Concomitant]
  7. TRISALICYLATE [Concomitant]
  8. AMIEN [Concomitant]

REACTIONS (3)
  - ASTHENIA [None]
  - HYPERHIDROSIS [None]
  - TREMOR [None]
